FAERS Safety Report 4421147-X (Version None)
Quarter: 2004Q3

REPORT INFORMATION
  Report Type: 
  Country: None (occurrence: None)
  Receive Date: 20040707
  Receipt Date: 20040421
  Transmission Date: 20050211
  Serious: Yes (Other)
  Sender: FDA-Public Use
  Company Number: 365298

PATIENT
  Age: 9 Year
  Weight: 23.9 kg

DRUGS (13)
  1. FUZEON [Suspect]
     Indication: VIRAL INFECTION
     Dosage: 45 MCG 2 PER DAY SUBCUTANEOUS
     Route: 058
     Dates: start: 20040308
  2. ATAZANAVIR (ATAZANAVIR) [Concomitant]
  3. FORTOVASE [Concomitant]
  4. ATOVAQUONE [Concomitant]
  5. ERYTHROPOIETIN (EPOETIN NOS) [Concomitant]
  6. FERROUS SULFATE TAB [Concomitant]
  7. VASOTEC (ENALAPRILUM) [Concomitant]
  8. NORVASC [Concomitant]
  9. BAKING SODA (SODIUM BICARBONATE) [Concomitant]
  10. TUMS (CALCIUM CARBONATE) [Concomitant]
  11. ROCALTROL [Concomitant]
  12. FLOVENT [Concomitant]
  13. ZINC SULFATE (ZINC SULFATE) [Concomitant]

REACTIONS (1)
  - PAIN IN EXTREMITY [None]
